FAERS Safety Report 8267140-0 (Version None)
Quarter: 2012Q2

REPORT INFORMATION
  Report Type: 
  Country: None (occurrence: None)
  Receive Date: 20120404
  Receipt Date: 20120321
  Transmission Date: 20120825
  Serious: Yes (Other)
  Sender: FDA-Public Use
  Company Number: DSJ-2012-05647

PATIENT
  Age: 49 Year
  Sex: Female

DRUGS (4)
  1. ATENOLOL [Concomitant]
  2. BENICAR [Suspect]
     Indication: HYPERTENSION
     Dosage: 40 MG (40 MG,1 IN 1 D),PER ORAL ; 40 MG (40 MG,1 IN 1 D),PER ORAL
     Route: 048
     Dates: start: 20120321
  3. BENICAR [Suspect]
     Indication: HYPERTENSION
     Dosage: 40 MG (40 MG,1 IN 1 D),PER ORAL ; 40 MG (40 MG,1 IN 1 D),PER ORAL
     Route: 048
     Dates: start: 20120201, end: 20120313
  4. MEDICINE FOR ARRHYTHMIA [Concomitant]

REACTIONS (7)
  - BLOOD PRESSURE INCREASED [None]
  - OEDEMA PERIPHERAL [None]
  - CHOLELITHIASIS [None]
  - HEADACHE [None]
  - NAUSEA [None]
  - DRUG ADMINISTRATION ERROR [None]
  - GASTRITIS BACTERIAL [None]
